FAERS Safety Report 10153650 (Version 2)
Quarter: 2014Q2

REPORT INFORMATION
  Report Type: Report from Study
  Country: US (occurrence: US)
  Receive Date: 20140505
  Receipt Date: 20140505
  Transmission Date: 20141212
  Serious: Yes (Hospitalization)
  Sender: FDA-Public Use
  Company Number: US-BRISTOL-MYERS SQUIBB COMPANY-19344951

PATIENT
  Age: 75 Year
  Sex: Female
  Weight: 70.3 kg

DRUGS (14)
  1. IPILIMUMAB [Suspect]
     Indication: METASTATIC MALIGNANT MELANOMA
     Dosage: 2 DOSES
     Route: 042
     Dates: start: 20130805, end: 20130828
  2. METOPROLOL [Concomitant]
  3. DILTIAZEM HCL [Concomitant]
  4. POTASSIUM [Concomitant]
  5. ELECTROLYTES [Concomitant]
  6. VITAMIN K [Concomitant]
  7. ASPIRIN [Concomitant]
  8. DILTIAZEM CD [Concomitant]
  9. CLARITIN [Concomitant]
  10. METOPROLOL [Concomitant]
  11. LORAZEPAM [Concomitant]
  12. RANITIDINE [Concomitant]
  13. VANCOMYCIN [Concomitant]
  14. FLAGYL [Concomitant]

REACTIONS (3)
  - Muscular weakness [Recovered/Resolved]
  - Rectal haemorrhage [Recovered/Resolved]
  - Clostridium test positive [Recovered/Resolved]
